FAERS Safety Report 10434294 (Version 1)
Quarter: 2014Q3

REPORT INFORMATION
  Report Type: Report from Study
  Country: CZ (occurrence: CZ)
  Receive Date: 20140905
  Receipt Date: 20140905
  Transmission Date: 20150326
  Serious: Yes (Other)
  Sender: FDA-Public Use
  Company Number: CZ-BAXTER-2014BAX052049

PATIENT
  Sex: Female
  Weight: 3.8 kg

DRUGS (1)
  1. GLUK?ZA 5% VIAFLO [Suspect]
     Active Substance: DEXTROSE
     Indication: HYPOGLYCAEMIA
     Route: 042

REACTIONS (1)
  - Device related sepsis [Unknown]
